FAERS Safety Report 8019577-2 (Version None)
Quarter: 2012Q1

REPORT INFORMATION
  Report Type: 
  Country: None (occurrence: None)
  Receive Date: 20120103
  Receipt Date: 20111221
  Transmission Date: 20120608
  Serious: Yes (Death, Hospitalization)
  Sender: FDA-Public Use
  Company Number: GB-MERCK-1112USA02881

PATIENT
  Age: 54 Year
  Sex: Male

DRUGS (3)
  1. ANTIMICROBIAL (UNSPECIFIED) [Concomitant]
     Route: 065
  2. DECADRON [Suspect]
     Indication: STRIDOR
     Dosage: SINCE 8 DAYS PRE-PROCEDURALLY
     Route: 065
  3. AMINO ACIDS (UNSPECIFIED) AND CARBOHYDRATES (UNSPECIFIED) AND ELECTROL [Concomitant]
     Route: 065

REACTIONS (6)
  - IMPAIRED HEALING [None]
  - WOUND SECRETION [None]
  - DEATH [None]
  - WOUND COMPLICATION [None]
  - ABDOMINAL DISTENSION [None]
  - TENDERNESS [None]
